FAERS Safety Report 5370707-0 (Version None)
Quarter: 2007Q2

REPORT INFORMATION
  Report Type: 
  Country: None (occurrence: None)
  Receive Date: 20070618
  Receipt Date: 20061113
  Transmission Date: 20071010
  Serious: Yes (Hospitalization)
  Sender: FDA-Public Use
  Company Number: PHEH2006US14163

PATIENT
  Age: 83 Year
  Sex: Female

DRUGS (1)
  1. GLEEVEC [Suspect]
     Dosage: ORAL
     Route: 048

REACTIONS (2)
  - DYSPNOEA [None]
  - PERICARDIAL EFFUSION [None]
